FAERS Safety Report 20160703 (Version 5)
Quarter: 2022Q2

REPORT INFORMATION
  Report Type: Report from Study
  Country: US (occurrence: US)
  Receive Date: 20211208
  Receipt Date: 20220510
  Transmission Date: 20220720
  Serious: No
  Sender: FDA-Public Use
  Company Number: US-NOVARTISTESTPH-NVSC2021US280082

PATIENT
  Sex: Male

DRUGS (1)
  1. ENTRESTO [Suspect]
     Active Substance: SACUBITRIL\VALSARTAN
     Indication: Product used for unknown indication
     Dosage: 1 DOSAGE FORM, BID (24/26MG)
     Route: 048
     Dates: start: 202110

REACTIONS (8)
  - Weight decreased [Unknown]
  - Stress [Unknown]
  - Nasopharyngitis [Unknown]
  - Anxiety [Unknown]
  - Weight fluctuation [Unknown]
  - Cough [Recovered/Resolved]
  - Cough [Unknown]
  - Hypersensitivity [Unknown]
